FAERS Safety Report 6093908-5 (Version None)
Quarter: 2009Q1

REPORT INFORMATION
  Report Type: 
  Country: None (occurrence: None)
  Receive Date: 20090226
  Receipt Date: 20090217
  Transmission Date: 20090719
  Serious: Yes (Other)
  Sender: FDA-Public Use
  Company Number: US-JNJFOC-20090204562

PATIENT
  Age: 67 Year
  Sex: Female
  Weight: 85.28 kg

DRUGS (14)
  1. TYLENOL (CAPLET) [Suspect]
     Route: 048
  2. TYLENOL (CAPLET) [Suspect]
     Indication: ARTHRALGIA
     Dosage: 650 MG 3-4 TIMES A DAY
     Route: 048
  3. EXTRA STRENGTH TYLENOL [Suspect]
     Route: 048
  4. EXTRA STRENGTH TYLENOL [Suspect]
     Indication: BACK PAIN
     Dosage: 500-1000 MG AS NEEDED
     Route: 048
  5. VITAMIN-MINERAL COMPOUND TAB [Concomitant]
     Indication: VITAMIN SUPPLEMENTATION
  6. CENTRUM SILVER VITAMINS [Concomitant]
     Indication: VITAMIN SUPPLEMENTATION
  7. CRANBERRY PILLS [Concomitant]
     Indication: INFECTION PROPHYLAXIS
  8. OSTEO BIFLEX [Concomitant]
     Indication: ARTHROPATHY
  9. BILBERRY [Concomitant]
     Indication: PHYTOTHERAPY
     Dosage: ^FOR YEARS^
  10. TRANSFER FACTOR [Concomitant]
     Indication: HYPERSENSITIVITY
  11. NORVASC [Concomitant]
     Indication: HYPERTENSION
     Dosage: ^FOR YEARS^
  12. METOPROLOL [Concomitant]
     Indication: HYPERTENSION
     Dosage: ^FOR YEARS^
  13. DIOVAN HCT [Concomitant]
     Indication: HYPERTENSION
     Dosage: ^FOR YEARS^
  14. ALPRAZOLAM [Concomitant]
     Indication: ANXIETY
     Dosage: ^FOR YEARS^

REACTIONS (4)
  - ABDOMINAL DISCOMFORT [None]
  - EXPIRED DRUG ADMINISTERED [None]
  - INAPPROPRIATE SCHEDULE OF DRUG ADMINISTRATION [None]
  - UTERINE HAEMORRHAGE [None]
